FAERS Safety Report 11370391 (Version 3)
Quarter: 2016Q2

REPORT INFORMATION
  Report Type: Spontaneous
  Country: US (occurrence: US)
  Receive Date: 20150812
  Receipt Date: 20160603
  Transmission Date: 20160815
  Serious: Yes (Hospitalization)
  Sender: FDA-Public Use
  Company Number: US-DSJP-DSU-2015-124867

PATIENT
  Sex: Female
  Weight: 108.84 kg

DRUGS (4)
  1. BENICAR [Suspect]
     Active Substance: OLMESARTAN MEDOXOMIL
     Indication: BLOOD PRESSURE INCREASED
     Dosage: 20 MG, QD
     Route: 048
     Dates: start: 20040905
  2. LASIX [Concomitant]
     Active Substance: FUROSEMIDE
     Indication: PRODUCT USED FOR UNKNOWN INDICATION
     Dosage: 80 MG, BID
     Dates: start: 2000
  3. ATORVASTATIN [Concomitant]
     Active Substance: ATORVASTATIN
     Indication: PRODUCT USED FOR UNKNOWN INDICATION
     Dosage: 20 MG, QD
     Dates: start: 2005
  4. BENICAR HCT [Suspect]
     Active Substance: HYDROCHLOROTHIAZIDE\OLMESARTAN MEDOXOMIL
     Indication: BLOOD PRESSURE INCREASED
     Dosage: 40/25 MG, QD
     Dates: start: 20040905, end: 20060603

REACTIONS (6)
  - Dysphagia [Unknown]
  - Malabsorption [Recovering/Resolving]
  - Iron deficiency anaemia [Recovering/Resolving]
  - Constipation [Unknown]
  - Acute kidney injury [Recovering/Resolving]
  - Depression [Not Recovered/Not Resolved]

NARRATIVE: CASE EVENT DATE: 2006
